FAERS Safety Report 6012412-3 (Version None)
Quarter: 2008Q4

REPORT INFORMATION
  Report Type: 
  Country: None (occurrence: None)
  Receive Date: 20081218
  Receipt Date: 20081015
  Transmission Date: 20090506
  Serious: No
  Sender: FDA-Public Use
  Company Number: US-ASTRAZENECA-2008UW22933

PATIENT
  Age: 73 Year
  Sex: Female
  Weight: 70.3 kg

DRUGS (10)
  1. SYMBICORT [Suspect]
     Indication: CHRONIC OBSTRUCTIVE PULMONARY DISEASE
     Dosage: TWO PUFFS TWICE DAILY
     Route: 055
     Dates: start: 20081014
  2. SYMBICORT [Suspect]
     Indication: ASTHMA
     Dosage: TWO PUFFS TWICE DAILY
     Route: 055
     Dates: start: 20081014
  3. SINGULAIR [Concomitant]
  4. IMDUR [Concomitant]
  5. CARDIZEM CD [Concomitant]
  6. PEPCID (GENERIC) [Concomitant]
  7. LEVOTHYROXINE SODIUM [Concomitant]
  8. VITAMIN B COMPLEX CAP [Concomitant]
  9. DUONEB [Concomitant]
  10. ALBUTEROL [Concomitant]

REACTIONS (1)
  - RASH [None]
